FAERS Safety Report 16420935 (Version 2)
Quarter: 2019Q2

REPORT INFORMATION
  Report Type: Report from Study
  Country: US (occurrence: US)
  Receive Date: 20190612
  Receipt Date: 20190612
  Transmission Date: 20190711
  Serious: Yes (Other)
  Sender: FDA-Public Use
  Company Number: US-BAYER-2019-106053

PATIENT
  Age: 39 Year
  Sex: Male

DRUGS (1)
  1. CORICIDIN [Suspect]
     Active Substance: ACETAMINOPHEN\CHLORPHENIRAMINE MALEATE
     Indication: DRUG ABUSE
     Dosage: UNK

REACTIONS (2)
  - Adverse event [Unknown]
  - Drug abuse [Unknown]
